FAERS Safety Report 5562905-8 (Version None)
Quarter: 2007Q4

REPORT INFORMATION
  Report Type: 
  Country: None (occurrence: None)
  Receive Date: 20071212
  Receipt Date: 20071212
  Transmission Date: 20080405
  Serious: Yes (Hospitalization)
  Sender: FDA-Public Use
  Company Number: None

PATIENT
  Age: 60 Year
  Sex: Male

DRUGS (1)
  1. TERAZOSIN HCL [Suspect]
     Dosage: 5MG   HS   PO
     Route: 048
     Dates: start: 20051103, end: 20071129

REACTIONS (2)
  - HYPOTENSION [None]
  - ORTHOSTATIC HYPOTENSION [None]
